FAERS Safety Report 5056407-5 (Version None)
Quarter: 2006Q3

REPORT INFORMATION
  Report Type: 
  Country: None (occurrence: None)
  Receive Date: 20060717
  Receipt Date: 20060711
  Transmission Date: 20061208
  Serious: Yes (Other)
  Sender: FDA-Public Use
  Company Number: THQ2006A00330

PATIENT
  Age: 76 Year
  Sex: Male

DRUGS (9)
  1. ACTOS [Suspect]
     Indication: DIABETES MELLITUS
     Dosage: 30 MG (15 MG, 2 IN 1 D)
     Dates: start: 20050714
  2. FLUTICASONE PROPIONATE [Concomitant]
  3. FOLIC ACID [Concomitant]
  4. METFORMIN [Concomitant]
  5. SPIRIVA [Concomitant]
  6. OXIS (FORMOTEROL) [Concomitant]
  7. OMEPRAZOLE [Concomitant]
  8. DILTIAZEM HCL [Concomitant]
  9. EFORMOTEROL FUMARATE DIHYDRATE [Concomitant]

REACTIONS (9)
  - ACUTE MYELOID LEUKAEMIA [None]
  - HAEMATOCRIT DECREASED [None]
  - HAEMOGLOBIN DECREASED [None]
  - MEAN CELL HAEMOGLOBIN INCREASED [None]
  - MONOCYTE COUNT DECREASED [None]
  - NEUTROPHIL COUNT DECREASED [None]
  - PLATELET COUNT DECREASED [None]
  - RED BLOOD CELL SEDIMENTATION RATE INCREASED [None]
  - WHITE BLOOD CELL COUNT DECREASED [None]
